FAERS Safety Report 19381818 (Version 1)
Quarter: 2021Q2

REPORT INFORMATION
  Report Type: Spontaneous
  Country: HR (occurrence: HR)
  Receive Date: 20210607
  Receipt Date: 20210607
  Transmission Date: 20210717
  Serious: Yes (Other)
  Sender: FDA-Public Use
  Company Number: HR-COLLEGIUM PHARMACEUTICAL, INC.-2021CGM00675

PATIENT
  Age: 45 Year
  Sex: Female

DRUGS (5)
  1. TAPENTADOL [Concomitant]
     Active Substance: TAPENTADOL
  2. DEXKETOPROFEN [Concomitant]
     Active Substance: DEXKETOPROFEN
  3. TAPENTADOL [Concomitant]
     Active Substance: TAPENTADOL
  4. TAPENTADOL [Concomitant]
     Active Substance: TAPENTADOL
  5. TAPENTADOL [Suspect]
     Active Substance: TAPENTADOL
     Indication: BREAKTHROUGH PAIN
     Dosage: 2.5 ML, EVERY 4 HOURS

REACTIONS (1)
  - Suspected transmission of an infectious agent via product [Unknown]
